FAERS Safety Report 6519820-2 (Version None)
Quarter: 2009Q4

REPORT INFORMATION
  Report Type: 
  Country: None (occurrence: None)
  Receive Date: 20091228
  Receipt Date: 20091228
  Transmission Date: 20100525
  Serious: No
  Sender: FDA-Public Use
  Company Number: None

PATIENT
  Age: 10 Year
  Sex: Female
  Weight: 43.0917 kg

DRUGS (2)
  1. LUPRON DEPOT [Suspect]
     Indication: BODY HEIGHT BELOW NORMAL
     Dosage: 15 MG MONTHLY IM
     Route: 030
  2. LUPRON DEPOT [Suspect]
     Indication: PRECOCIOUS PUBERTY
     Dosage: 15 MG MONTHLY IM
     Route: 030

REACTIONS (1)
  - FUNGAL SKIN INFECTION [None]
